FAERS Safety Report 9870829 (Version 2)
Quarter: 2014Q1

REPORT INFORMATION
  Report Type: Spontaneous
  Country: JP (occurrence: JP)
  Receive Date: 20140205
  Receipt Date: 20140322
  Transmission Date: 20141002
  Serious: No
  Sender: FDA-Public Use
  Company Number: PHHY2014JP013598

PATIENT
  Age: 91 Year
  Sex: Female
  Weight: 40 kg

DRUGS (9)
  1. FAMVIR [Suspect]
     Indication: HERPES ZOSTER
     Dosage: 500 MG, BID
     Route: 048
     Dates: start: 20140107
  2. FAMVIR [Suspect]
     Dosage: 500 MG, QD
     Route: 048
     Dates: start: 20140108, end: 20140108
  3. ULCERLMIN [Concomitant]
     Dosage: 3 G, UNK
     Route: 048
  4. LENDORMIN [Concomitant]
     Dosage: 0.25 MG, UNK
     Route: 048
  5. TANATRIL [Concomitant]
     Dosage: 5 MG, UNK
     Route: 048
  6. PLAVIX [Concomitant]
     Dosage: 75 MG, UNK
     Route: 048
  7. PLETAAL [Concomitant]
     Dosage: 400 MG, UNK
     Route: 048
  8. CALONAL [Concomitant]
     Dosage: 2700 MG, UNK
     Route: 048
  9. MECOBALAMIN [Concomitant]
     Dosage: 4500 UG, UNK
     Route: 048

REACTIONS (3)
  - Altered state of consciousness [Recovering/Resolving]
  - Dysarthria [Unknown]
  - Somnolence [Unknown]
